FAERS Safety Report 17140191 (Version 1)
Quarter: 2019Q4

REPORT INFORMATION
  Report Type: Spontaneous
  Country: JP (occurrence: JP)
  Receive Date: 20191211
  Receipt Date: 20191211
  Transmission Date: 20200122
  Serious: Yes (Other)
  Sender: FDA-Public Use
  Company Number: NVSJ2019JP005107

PATIENT
  Age: 67 Year
  Sex: Male

DRUGS (1)
  1. PAZOPANIB [Suspect]
     Active Substance: PAZOPANIB
     Indication: RENAL CELL CARCINOMA
     Dosage: 400 MG/DAY
     Route: 048

REACTIONS (11)
  - Coronary artery stenosis [Unknown]
  - Aortic valve stenosis [Unknown]
  - Cardiomegaly [Unknown]
  - Left ventricular enlargement [Unknown]
  - Ventricular hypokinesia [Unknown]
  - Dyspnoea exertional [Unknown]
  - Orthopnoea [Unknown]
  - Pleural effusion [Unknown]
  - Gastrointestinal haemorrhage [Unknown]
  - Brain natriuretic peptide increased [Unknown]
  - Cardiomyopathy [Unknown]

NARRATIVE: CASE EVENT DATE: 201810
